FAERS Safety Report 18119415 (Version 1)
Quarter: 2020Q3

REPORT INFORMATION
  Report Type: Report from Study
  Country: US (occurrence: US)
  Receive Date: 20200806
  Receipt Date: 20200806
  Transmission Date: 20201103
  Serious: Yes (Other)
  Sender: FDA-Public Use
  Company Number: US-PFIZER INC-1343-13524

PATIENT
  Sex: Male
  Weight: 3.24 kg

DRUGS (10)
  1. WELLBUTRIN [Suspect]
     Active Substance: BUPROPION HYDROCHLORIDE
     Dosage: UNK
     Route: 064
  2. CRIXIVAN [Suspect]
     Active Substance: INDINAVIR SULFATE
     Dosage: 1600 MG, DAILY
     Route: 064
     Dates: start: 20001109, end: 20010322
  3. NORVIR [Suspect]
     Active Substance: RITONAVIR
     Dosage: 400 MG, DAILY
     Route: 064
     Dates: start: 20001109, end: 20010322
  4. COMBIVIR [Suspect]
     Active Substance: LAMIVUDINE\ZIDOVUDINE
     Dosage: UNK
     Route: 064
     Dates: start: 20001109
  5. ZERIT [Suspect]
     Active Substance: STAVUDINE
     Dosage: 80 MG, DAILY
     Route: 064
     Dates: end: 20000926
  6. EPIVIR [Suspect]
     Active Substance: LAMIVUDINE
     Dosage: 300 MG, DAILY
     Route: 064
     Dates: end: 20000926
  7. VIRAMUNE [Suspect]
     Active Substance: NEVIRAPINE
     Dosage: 400 MG, DAILY
     Route: 064
     Dates: start: 20000810, end: 20000926
  8. VIRACEPT [Suspect]
     Active Substance: NELFINAVIR MESYLATE
     Dosage: 2500 MG, DAILY
     Route: 064
     Dates: end: 20000926
  9. SUSTIVA [Suspect]
     Active Substance: EFAVIRENZ
     Dosage: 800 MG, DAILY
     Route: 064
     Dates: end: 20000810
  10. BUPROPION. [Concomitant]
     Active Substance: BUPROPION
     Dosage: UNK

REACTIONS (3)
  - Meconium ileus [Unknown]
  - Maternal exposure during pregnancy [Unknown]
  - Cystic fibrosis pancreatic [Unknown]
